FAERS Safety Report 23769248 (Version 3)
Quarter: 2025Q2

REPORT INFORMATION
  Report Type: Spontaneous
  Country: US (occurrence: US)
  Receive Date: 20240422
  Receipt Date: 20250611
  Transmission Date: 20250717
  Serious: No
  Sender: PFIZER
  Company Number: US-PFIZER INC-202400090643

PATIENT
  Age: 75 Year
  Sex: Female

DRUGS (5)
  1. XELJANZ XR [Suspect]
     Active Substance: TOFACITINIB CITRATE
  2. LYRICA [Concomitant]
     Active Substance: PREGABALIN
  3. PREDNISONE [Concomitant]
     Active Substance: PREDNISONE
  4. TRAMADOL [Concomitant]
     Active Substance: TRAMADOL
  5. CYCLOBENZAPRINE [Concomitant]
     Active Substance: CYCLOBENZAPRINE

REACTIONS (2)
  - Blood pressure increased [Unknown]
  - Pain [Unknown]
